FAERS Safety Report 7363945-9 (Version None)
Quarter: 2011Q1

REPORT INFORMATION
  Report Type: 
  Country: None (occurrence: None)
  Receive Date: 20110321
  Receipt Date: 20110308
  Transmission Date: 20110831
  Serious: Yes (Death)
  Sender: FDA-Public Use
  Company Number: US-ACTELION-A-US2011-45483

PATIENT

DRUGS (2)
  1. TRACLEER [Suspect]
     Indication: PULMONARY ARTERIAL HYPERTENSION
     Dosage: UNK
     Route: 048
     Dates: start: 20051117, end: 20110211
  2. COUMADIN [Concomitant]

REACTIONS (3)
  - ATRIAL FIBRILLATION [None]
  - ENDOTRACHEAL INTUBATION [None]
  - EMBOLIC STROKE [None]
